FAERS Safety Report 7778537-7 (Version None)
Quarter: 2011Q3

REPORT INFORMATION
  Report Type: 
  Country: None (occurrence: None)
  Receive Date: 20110926
  Receipt Date: 20110923
  Transmission Date: 20111222
  Serious: Yes (Hospitalization)
  Sender: FDA-Public Use
  Company Number: PHHO2011NO14507

PATIENT
  Sex: Male

DRUGS (8)
  1. TASIGNA [Suspect]
     Indication: GASTROINTESTINAL STROMAL TUMOUR
     Dosage: 400 MG, BID
     Dates: start: 20110317, end: 20110825
  2. GLIMEPIRIDE [Concomitant]
     Dosage: 2 MG, QD
  3. AEROBEC [Concomitant]
  4. NEXIUM [Concomitant]
     Dosage: 40 MG, QD
  5. METFORMIN HCL [Concomitant]
     Dosage: 1000 MG, BID
  6. APROVEL [Concomitant]
     Dosage: 300 MG, QD
  7. FORMOTEROL FUMARATE [Concomitant]
  8. BRICANYL [Concomitant]

REACTIONS (1)
  - MYOCARDIAL INFARCTION [None]
